FAERS Safety Report 17861263 (Version 1)
Quarter: 2020Q2

REPORT INFORMATION
  Report Type: Spontaneous
  Country: US (occurrence: US)
  Receive Date: 20200604
  Receipt Date: 20200604
  Transmission Date: 20200714
  Serious: No
  Sender: FDA-Public Use
  Company Number: US-HARMONY BIOSCIENCES-2020HMY00188

PATIENT
  Age: 52 Year
  Sex: Male
  Weight: 106.58 kg

DRUGS (9)
  1. WAKIX [Suspect]
     Active Substance: PITOLISANT HYDROCHLORIDE
     Indication: NARCOLEPSY
     Dosage: 8.9 MG, 1X/DAY
     Route: 048
     Dates: start: 20200214, end: 20200223
  2. AMLODIPINE [Concomitant]
     Active Substance: AMLODIPINE BESYLATE
  3. XYREM [Concomitant]
     Active Substance: SODIUM OXYBATE
  4. WAKIX [Suspect]
     Active Substance: PITOLISANT HYDROCHLORIDE
     Indication: CATAPLEXY
  5. GABAPENTIN. [Concomitant]
     Active Substance: GABAPENTIN
  6. LAMICTAL [Concomitant]
     Active Substance: LAMOTRIGINE
  7. VENLAFAXINE [Concomitant]
     Active Substance: VENLAFAXINE HYDROCHLORIDE
  8. ISOSORBIDE. [Concomitant]
     Active Substance: ISOSORBIDE
  9. ATORVASTATIN [Concomitant]
     Active Substance: ATORVASTATIN

REACTIONS (5)
  - Rash macular [Recovered/Resolved]
  - Skin wrinkling [Recovered/Resolved]
  - Rhinorrhoea [Recovered/Resolved]
  - Anxiety [Recovered/Resolved]
  - Sneezing [Recovered/Resolved]

NARRATIVE: CASE EVENT DATE: 202002
